FAERS Safety Report 8238745-8 (Version None)
Quarter: 2012Q1

REPORT INFORMATION
  Report Type: 
  Country: None (occurrence: None)
  Receive Date: 20120327
  Receipt Date: 20120319
  Transmission Date: 20120608
  Serious: Yes (Death, Hospitalization)
  Sender: FDA-Public Use
  Company Number: CA-JNJFOC-20120309506

PATIENT
  Sex: Male
  Weight: 114 kg

DRUGS (6)
  1. USTEKINUMAB [Suspect]
     Route: 058
     Dates: start: 20070501
  2. ALTACE [Concomitant]
  3. USTEKINUMAB [Suspect]
     Indication: PSORIASIS
     Route: 058
     Dates: start: 20120130
  4. HYDROCHLOROTHIAZIDE [Concomitant]
  5. NITROGLYCERIN [Concomitant]
  6. FLEXERIL [Concomitant]

REACTIONS (12)
  - DYSPNOEA [None]
  - VOMITING [None]
  - TACHYCARDIA [None]
  - CONDITION AGGRAVATED [None]
  - HYPOTENSION [None]
  - ANGINA PECTORIS [None]
  - ACUTE MYELOID LEUKAEMIA [None]
  - MYELOID LEUKAEMIA [None]
  - NAUSEA [None]
  - GENERAL PHYSICAL HEALTH DETERIORATION [None]
  - CELLULITIS [None]
  - PYREXIA [None]
